FAERS Safety Report 13002089 (Version 2)
Quarter: 2018Q4

REPORT INFORMATION
  Report Type: Report from Study
  Country: None (occurrence: NL)
  Receive Date: 20161206
  Receipt Date: 20181126
  Transmission Date: 20190204
  Serious: Yes (Disabling)
  Sender: FDA-Public Use
  Company Number: NL-ABBVIE-16K-114-1797731-00

PATIENT
  Sex: Female

DRUGS (1)
  1. DUODOPA [Suspect]
     Active Substance: CARBIDOPA\LEVODOPA
     Indication: PARKINSON^S DISEASE
     Dosage: MD: 3.0, CD: 6.7, ED: 5.4
     Route: 050
     Dates: start: 20140130

REACTIONS (7)
  - Dysphagia [Not Recovered/Not Resolved]
  - Dysstasia [Not Recovered/Not Resolved]
  - Photophobia [Not Recovered/Not Resolved]
  - Skin discolouration [Not Recovered/Not Resolved]
  - Fibroma [Recovered/Resolved]
  - Urinary tract infection [Recovered/Resolved]
  - Stoma site reaction [Recovering/Resolving]
